FAERS Safety Report 10956959 (Version 1)
Quarter: 2015Q1

REPORT INFORMATION
  Report Type: Spontaneous
  Country: US (occurrence: None)
  Receive Date: 20150325
  Receipt Date: 20150325
  Transmission Date: 20150721
  Serious: Yes (Disabling)
  Sender: FDA-Public Use
  Company Number: None

PATIENT
  Age: 43 Year
  Sex: Female
  Weight: 50.35 kg

DRUGS (9)
  1. VITAMIN D [Concomitant]
     Active Substance: CHOLECALCIFEROL
  2. BIOTIN [Concomitant]
     Active Substance: BIOTIN
  3. LAMICTAL [Concomitant]
     Active Substance: LAMOTRIGINE
  4. PRISTIQ EXTENDED RELEASE [Suspect]
     Active Substance: DESVENLAFAXINE SUCCINATE
     Indication: MAJOR DEPRESSION
     Dosage: 1 PILL 50 MG ONCE DAILY TAKEN BY MOUTH
     Route: 048
     Dates: start: 20150317, end: 20150324
  5. MULTI VITAMIN [Concomitant]
     Active Substance: VITAMINS
  6. CALCIUM [Concomitant]
     Active Substance: CALCIUM
  7. CYTOMEL [Concomitant]
     Active Substance: LIOTHYRONINE SODIUM
  8. ESTRACE [Concomitant]
     Active Substance: ESTRADIOL
  9. SYNTHROID [Concomitant]
     Active Substance: LEVOTHYROXINE SODIUM

REACTIONS (6)
  - Musculoskeletal stiffness [None]
  - Fatigue [None]
  - Somnolence [None]
  - Nausea [None]
  - Presyncope [None]
  - Neck pain [None]

NARRATIVE: CASE EVENT DATE: 20150323
